FAERS Safety Report 10436202 (Version 4)
Quarter: 2014Q4

REPORT INFORMATION
  Report Type: Report from Study
  Country: CA (occurrence: CA)
  Receive Date: 20140908
  Receipt Date: 20141028
  Transmission Date: 20150528
  Serious: Yes (Hospitalization)
  Sender: FDA-Public Use
  Company Number: CA-JNJFOC-20140806469

PATIENT
  Age: 45 Year
  Sex: Female
  Weight: 47.6 kg

DRUGS (7)
  1. REMICADE [Suspect]
     Active Substance: INFLIXIMAB
     Indication: PYODERMA GANGRENOSUM
     Dosage: ONCE EVERY 2, 6 AND 8 WEEKS; 5 MG/KG
     Route: 042
     Dates: start: 20140902
  2. ACETAMINOPHEN. [Concomitant]
     Active Substance: ACETAMINOPHEN
     Indication: PREMEDICATION
     Route: 048
  3. REMICADE [Suspect]
     Active Substance: INFLIXIMAB
     Indication: PYODERMA GANGRENOSUM
     Route: 042
     Dates: start: 20140912
  4. FLUCONAZOLE. [Concomitant]
     Active Substance: FLUCONAZOLE
     Dosage: 2 TABS??WOULD FINISH ON 28-AUG-2014.
     Route: 065
  5. BENADRYL [Concomitant]
     Active Substance: DIPHENHYDRAMINE HYDROCHLORIDE
     Indication: PREMEDICATION
     Route: 048
  6. HYDROCORTISONE. [Concomitant]
     Active Substance: HYDROCORTISONE
     Indication: PREMEDICATION
     Route: 042
  7. REMICADE [Suspect]
     Active Substance: INFLIXIMAB
     Indication: PYODERMA GANGRENOSUM
     Dosage: ONCE EVERY 2, 6 AND 8 WEEKS; 5 MG/KG
     Route: 042
     Dates: start: 20140724

REACTIONS (11)
  - Urinary tract infection [Not Recovered/Not Resolved]
  - Pain [Unknown]
  - Infusion related reaction [Unknown]
  - Oxygen saturation decreased [Recovering/Resolving]
  - Hypersomnia [Unknown]
  - Chills [Unknown]
  - Decreased appetite [Unknown]
  - Heart rate increased [Recovering/Resolving]
  - Blood pressure increased [Unknown]
  - Dyspnoea [Unknown]
  - Product use issue [Unknown]

NARRATIVE: CASE EVENT DATE: 201407
